FAERS Safety Report 7773700-3 (Version None)
Quarter: 2011Q3

REPORT INFORMATION
  Report Type: 
  Country: None (occurrence: None)
  Receive Date: 20110920
  Receipt Date: 20110907
  Transmission Date: 20111222
  Serious: Yes (Other)
  Sender: FDA-Public Use
  Company Number: TPA2011A05599

PATIENT
  Age: 76 Year
  Sex: Male

DRUGS (2)
  1. ACTOS [Suspect]
     Dosage: 30 MG, 1 IN 1 D,ORAL : 15 MG, 1 IN 1 D, ORAL
     Route: 048
     Dates: start: 20060101, end: 20080101
  2. ACTOS [Suspect]
     Dosage: 30 MG, 1 IN 1 D,ORAL : 15 MG, 1 IN 1 D, ORAL
     Route: 048
     Dates: start: 20080101, end: 20110817

REACTIONS (1)
  - BLADDER NEOPLASM [None]
